FAERS Safety Report 17171995 (Version 1)
Quarter: 2019Q4

REPORT INFORMATION
  Report Type: Spontaneous
  Country: US (occurrence: US)
  Receive Date: 20191218
  Receipt Date: 20191218
  Transmission Date: 20200122
  Serious: No
  Sender: FDA-Public Use
  Company Number: US-BAYER-2019-231177

PATIENT

DRUGS (1)
  1. MIRALAX [Suspect]
     Active Substance: POLYETHYLENE GLYCOL 3350
     Dosage: UNK, QD
     Dates: start: 2007

REACTIONS (4)
  - Nausea [None]
  - Product colour issue [None]
  - Incorrect product administration duration [Unknown]
  - Product physical issue [None]

NARRATIVE: CASE EVENT DATE: 2007
